FAERS Safety Report 11117444 (Version 1)
Quarter: 2015Q2

REPORT INFORMATION
  Report Type: Spontaneous
  Country: US (occurrence: US)
  Receive Date: 20150516
  Receipt Date: 20150516
  Transmission Date: 20150821
  Serious: No
  Sender: FDA-Public Use
  Company Number: US-009507513-1504USA018406

PATIENT
  Age: 15 Year
  Sex: Female

DRUGS (1)
  1. NEXPLANON [Suspect]
     Active Substance: ETONOGESTREL
     Dosage: EVERY 3 YEARS, 1 ROD
     Route: 059
     Dates: start: 201410

REACTIONS (2)
  - Amenorrhoea [Unknown]
  - Menstruation irregular [Unknown]

NARRATIVE: CASE EVENT DATE: 201410
